FAERS Safety Report 8674953 (Version 3)
Quarter: 2012Q4

REPORT INFORMATION
  Report Type: 
  Country: US (occurrence: US)
  Receive Date: 20120720
  Receipt Date: 20121004
  Transmission Date: 20130627
  Serious: Yes (Other)
  Sender: FDA-Public Use
  Company Number: US-PFIZER INC-2012174116

PATIENT
  Age: 59 Year
  Sex: Male
  Weight: 102 kg

DRUGS (5)
  1. LIPITOR [Suspect]
     Indication: CARDIAC DISORDER
     Dosage: 20 mg, 1x/day
     Route: 048
     Dates: start: 1997
  2. LIPITOR [Suspect]
     Dosage: 40 mg, 1x/day
     Route: 048
     Dates: start: 2006, end: 201201
  3. ATORVASTATIN CALCIUM [Suspect]
     Indication: CARDIAC DISORDER
     Dosage: 40 mg, daily
     Dates: start: 201201, end: 201201
  4. ATENOLOL [Concomitant]
     Dosage: UNK
  5. DIGOXIN [Concomitant]
     Dosage: UNK

REACTIONS (3)
  - Herpes zoster [Recovered/Resolved]
  - Rash [Recovered/Resolved]
  - Pruritus [Recovered/Resolved]
